FAERS Safety Report 9696335 (Version 1)
Quarter: 2013Q4

REPORT INFORMATION
  Report Type: Spontaneous
  Country: US (occurrence: US)
  Receive Date: 20131119
  Receipt Date: 20131119
  Transmission Date: 20140711
  Serious: Yes (Other)
  Sender: FDA-Public Use
  Company Number: US-ASTRAZENECA-2013SE83301

PATIENT
  Age: 68 Year
  Sex: Female
  Weight: 89.8 kg

DRUGS (10)
  1. NEXIUM [Suspect]
     Indication: GASTROOESOPHAGEAL REFLUX DISEASE
     Route: 048
     Dates: start: 2005, end: 2013
  2. NEXIUM [Suspect]
     Indication: GASTROOESOPHAGEAL REFLUX DISEASE
     Route: 048
     Dates: start: 2005, end: 2013
  3. NEXIUM [Suspect]
     Indication: GASTROOESOPHAGEAL REFLUX DISEASE
     Route: 048
     Dates: start: 2013
  4. NEXIUM [Suspect]
     Indication: GASTROOESOPHAGEAL REFLUX DISEASE
     Route: 048
     Dates: start: 2013
  5. ANASTRAZOLE [Suspect]
     Indication: BREAST CANCER STAGE IV
     Route: 048
     Dates: start: 2009
  6. OMEPRAZOLE [Suspect]
     Indication: GASTROOESOPHAGEAL REFLUX DISEASE
     Route: 048
     Dates: start: 2013, end: 2013
  7. CANCER MEDICATION [Suspect]
     Route: 065
  8. CITRACEL [Concomitant]
     Indication: OSTEOPOROSIS
     Dosage: 500IU/620MG DAILY
     Route: 048
     Dates: start: 2011
  9. CLARITIN [Concomitant]
     Indication: DIZZINESS
     Route: 048
  10. CALCIUM [Concomitant]

REACTIONS (10)
  - Breast cancer stage IV [Not Recovered/Not Resolved]
  - Chest pain [Recovered/Resolved]
  - Osteoporosis [Not Recovered/Not Resolved]
  - Insomnia [Not Recovered/Not Resolved]
  - Nightmare [Not Recovered/Not Resolved]
  - Dizziness [Not Recovered/Not Resolved]
  - Depression [Unknown]
  - Sinusitis [Unknown]
  - Drug dose omission [Unknown]
  - Drug ineffective [Unknown]
